FAERS Safety Report 9169875 (Version 1)
Quarter: 2013Q1

REPORT INFORMATION
  Report Type: Spontaneous
  Country: US (occurrence: US)
  Receive Date: 20130319
  Receipt Date: 20130319
  Transmission Date: 20140127
  Serious: Yes (Other)
  Sender: FDA-Public Use
  Company Number: US-SP-2013-03980

PATIENT
  Age: 86 Year
  Sex: Male

DRUGS (5)
  1. BCG  THERAPEUTICS [Suspect]
     Indication: BLADDER CANCER
     Route: 043
  2. PREDNISONE [Concomitant]
     Dosage: 5MG/DAY INCREASE TO 20MG/DAY
  3. DEXAMETHASONE [Concomitant]
     Dosage: DECREASED DOWN TO 0.5MG/DAY
  4. MYCOPEHNOLATE MOFETIL [Concomitant]
     Dosage: 500MG/DAY
  5. DOXYCYCLINE [Concomitant]
     Dosage: 100MG/DAY

REACTIONS (1)
  - Pemphigoid [Unknown]
